FAERS Safety Report 9924416 (Version 1)
Quarter: 2014Q1

REPORT INFORMATION
  Report Type: Spontaneous
  Country: US (occurrence: None)
  Receive Date: 20140224
  Receipt Date: 20140224
  Transmission Date: 20141002
  Serious: Yes (Disabling)
  Sender: FDA-Public Use
  Company Number: None

PATIENT
  Age: 54 Year
  Sex: Male
  Weight: 96.16 kg

DRUGS (3)
  1. ALEVE [Suspect]
     Indication: MYALGIA
     Dosage: 1 TO 2 PILLS AS NEEDED?4 TO 5 YEARS WHEN NEEDED
     Route: 048
  2. ALEVE [Suspect]
     Indication: ARTHRALGIA
     Dosage: 1 TO 2 PILLS AS NEEDED?4 TO 5 YEARS WHEN NEEDED
     Route: 048
  3. ALEVE [Suspect]
     Indication: OCCUPATIONAL PHYSICAL PROBLEM
     Dosage: 1 TO 2 PILLS AS NEEDED?4 TO 5 YEARS WHEN NEEDED
     Route: 048

REACTIONS (11)
  - Dyspnoea [None]
  - Chest pain [None]
  - Confusional state [None]
  - Amnesia [None]
  - Increased upper airway secretion [None]
  - Productive cough [None]
  - Musculoskeletal pain [None]
  - Haematochezia [None]
  - Gastrooesophageal reflux disease [None]
  - Insomnia [None]
  - Drug ineffective [None]
